FAERS Safety Report 23035601 (Version 1)
Quarter: 2023Q4

REPORT INFORMATION
  Report Type: Spontaneous
  Country: MY (occurrence: MY)
  Receive Date: 20231006
  Receipt Date: 20231006
  Transmission Date: 20240109
  Serious: Yes (Death, Other)
  Sender: FDA-Public Use
  Company Number: MY-NOVITIUMPHARMA-2023MYNVP01750

PATIENT
  Weight: 2.07 kg

DRUGS (1)
  1. DEXAMETHASONE [Suspect]
     Active Substance: DEXAMETHASONE
     Indication: Maternal therapy to enhance foetal lung maturity

REACTIONS (2)
  - Sudden infant death syndrome [Fatal]
  - Foetal exposure during pregnancy [Unknown]
